FAERS Safety Report 4997990-5 (Version None)
Quarter: 2006Q2

REPORT INFORMATION
  Report Type: 
  Country: None (occurrence: None)
  Receive Date: 20060510
  Receipt Date: 20060503
  Transmission Date: 20061013
  Serious: Yes (Hospitalization)
  Sender: FDA-Public Use
  Company Number: FR-ROCHE-446605

PATIENT
  Age: 73 Year
  Sex: Male
  Weight: 68 kg

DRUGS (18)
  1. KYTRIL [Suspect]
     Indication: DRUG USE FOR UNKNOWN INDICATION
     Route: 048
     Dates: start: 20060328, end: 20060331
  2. ELOXATIN [Suspect]
     Indication: DRUG USE FOR UNKNOWN INDICATION
     Dosage: THIRD CYCLE , DOSE WAS REDUCED.
     Route: 042
     Dates: start: 20060328, end: 20060328
  3. ELOXATIN [Suspect]
     Dosage: ONE PER CYCLE.
     Route: 042
     Dates: start: 20060303
  4. ELOXATIN [Suspect]
     Dosage: ONE PER CYCLE.
     Route: 042
     Dates: start: 20060216
  5. TOMUDEX [Suspect]
     Indication: DRUG USE FOR UNKNOWN INDICATION
     Dosage: THIRD CYCLE, DOSE WAS REDUCED.
     Route: 042
     Dates: start: 20060328, end: 20060328
  6. TOMUDEX [Suspect]
     Route: 042
     Dates: start: 20060303
  7. TOMUDEX [Suspect]
     Route: 042
     Dates: start: 20060216
  8. MOPRAL [Concomitant]
  9. LEXOMIL [Concomitant]
  10. LASILIX [Concomitant]
     Dates: start: 20060117, end: 20060216
  11. CELECTOL [Concomitant]
     Dates: start: 20060117, end: 20060216
  12. TRIATEC [Concomitant]
     Dates: start: 20060117, end: 20060216
  13. ASPIRIN [Concomitant]
     Dates: start: 20060117, end: 20060216
  14. MOTILIUM [Concomitant]
     Dates: start: 20060115
  15. PLAVIX [Concomitant]
     Dates: start: 20060117, end: 20060216
  16. PAROXETINE HYDROCHLORIDE [Concomitant]
     Dates: start: 20060117, end: 20060216
  17. ZOPHREN [Concomitant]
     Dates: start: 20060303
  18. PRIMPERAN TAB [Concomitant]

REACTIONS (7)
  - ASTHENIA [None]
  - ERUCTATION [None]
  - MUSCLE RIGIDITY [None]
  - MYOCARDIAL ISCHAEMIA [None]
  - PAIN IN EXTREMITY [None]
  - SOMNOLENCE [None]
  - TREMOR [None]
